FAERS Safety Report 11175458 (Version 1)
Quarter: 2015Q2

REPORT INFORMATION
  Report Type: Spontaneous
  Country: US (occurrence: None)
  Receive Date: 20150608
  Receipt Date: 20150608
  Transmission Date: 20150821
  Serious: Yes (Death)
  Sender: FDA-Public Use
  Company Number: None

PATIENT
  Age: 35 Year
  Sex: Male
  Weight: 90.72 kg

DRUGS (2)
  1. PURELL [Suspect]
     Active Substance: ALCOHOL
     Indication: INTENTIONAL PRODUCT MISUSE
     Route: 048
     Dates: start: 20130101, end: 20140110
  2. BRANDON [Concomitant]

REACTIONS (2)
  - Alcohol abuse [None]
  - Drug abuse [None]

NARRATIVE: CASE EVENT DATE: 20140110
